FAERS Safety Report 8339555-3 (Version None)
Quarter: 2012Q2

REPORT INFORMATION
  Report Type: 
  Country: None (occurrence: None)
  Receive Date: 20120507
  Receipt Date: 20120502
  Transmission Date: 20120825
  Serious: Yes (Disabling)
  Sender: FDA-Public Use
  Company Number: IL-GENZYME-CLOF-1002133

PATIENT
  Sex: Male

DRUGS (1)
  1. EVOLTRA [Suspect]
     Indication: PRODUCT USED FOR UNKNOWN INDICATION
     Dosage: UNK
     Route: 065

REACTIONS (2)
  - OEDEMA PERIPHERAL [None]
  - SKIN EXFOLIATION [None]
